FAERS Safety Report 5010478-0 (Version None)
Quarter: 2006Q2

REPORT INFORMATION
  Report Type: 
  Country: None (occurrence: None)
  Receive Date: 20060524
  Receipt Date: 20060524
  Transmission Date: 20061013
  Serious: Yes (Hospitalization)
  Sender: FDA-Public Use
  Company Number: None

PATIENT
  Age: 82 Year
  Sex: Female

DRUGS (1)
  1. ROPINEROLE 0.5 MG [Suspect]
     Dosage: 0.5 MG TID PO
     Route: 048

REACTIONS (4)
  - DECREASED APPETITE [None]
  - EARLY SATIETY [None]
  - NAUSEA [None]
  - VOMITING [None]
